FAERS Safety Report 13828574 (Version 1)
Quarter: 2017Q3

REPORT INFORMATION
  Report Type: Spontaneous
  Country: US (occurrence: US)
  Receive Date: 20170803
  Receipt Date: 20170803
  Transmission Date: 20171127
  Serious: No
  Sender: FDA-Public Use
  Company Number: PHEH2017US022857

PATIENT
  Sex: Female

DRUGS (4)
  1. AFINITOR [Suspect]
     Active Substance: EVEROLIMUS
     Indication: BREAST CANCER
     Dosage: 5 MG, QD
     Route: 050
  2. AFINITOR [Suspect]
     Active Substance: EVEROLIMUS
     Indication: HEPATIC CANCER
  3. LETROZOL [Suspect]
     Active Substance: LETROZOLE
     Indication: BREAST CANCER
     Dosage: 2.5 MG, QD
     Route: 050
     Dates: start: 2014
  4. LETROZOL [Suspect]
     Active Substance: LETROZOLE
     Indication: HEPATIC CANCER

REACTIONS (4)
  - Stomatitis [Unknown]
  - Diarrhoea [Unknown]
  - Drug ineffective [Unknown]
  - Product use in unapproved indication [Unknown]
